FAERS Safety Report 18301209 (Version 1)
Quarter: 2020Q3

REPORT INFORMATION
  Report Type: Spontaneous
  Country: US (occurrence: US)
  Receive Date: 20200923
  Receipt Date: 20200923
  Transmission Date: 20201103
  Serious: No
  Sender: FDA-Public Use
  Company Number: US-RECKITT BENCKISER HEALTHCARE INT LIMITED-RB-81934-2020

PATIENT
  Age: 82 Year
  Sex: Male

DRUGS (1)
  1. MUCINEX [Suspect]
     Active Substance: GUAIFENESIN
     Indication: PULMONARY CONGESTION
     Dosage: UNK
     Route: 065

REACTIONS (2)
  - Incorrect product administration duration [Unknown]
  - Drug ineffective [Not Recovered/Not Resolved]
